FAERS Safety Report 16281061 (Version 2)
Quarter: 2019Q2

REPORT INFORMATION
  Report Type: Report from Study
  Country: US (occurrence: US)
  Receive Date: 20190507
  Receipt Date: 20190610
  Transmission Date: 20190711
  Serious: Yes (Hospitalization)
  Sender: FDA-Public Use
  Company Number: US-JNJFOC-20190320039

PATIENT
  Sex: Female

DRUGS (2)
  1. IMBRUVICA [Suspect]
     Active Substance: IBRUTINIB
     Indication: CHRONIC LYMPHOCYTIC LEUKAEMIA
     Route: 048
     Dates: start: 20190305
  2. IMBRUVICA [Suspect]
     Active Substance: IBRUTINIB
     Indication: CHRONIC LYMPHOCYTIC LEUKAEMIA
     Route: 048
     Dates: start: 20190402

REACTIONS (12)
  - Blood immunoglobulin M increased [Unknown]
  - Pollakiuria [Unknown]
  - Blood pressure increased [Recovered/Resolved]
  - Palpitations [Unknown]
  - White blood cell count increased [Unknown]
  - Blood viscosity increased [Unknown]
  - Arthropod bite [Unknown]
  - Blood potassium decreased [Unknown]
  - Blood immunoglobulin G abnormal [Unknown]
  - Bradycardia [Unknown]
  - Hypotension [Unknown]
  - Urine odour abnormal [Unknown]
